FAERS Safety Report 15677588 (Version 2)
Quarter: 2018Q4

REPORT INFORMATION
  Report Type: Spontaneous
  Country: US (occurrence: US)
  Receive Date: 20181130
  Receipt Date: 20181211
  Transmission Date: 20190205
  Serious: No
  Sender: FDA-Public Use
  Company Number: US-BEH-2018097232

PATIENT
  Age: 46 Year
  Sex: Male

DRUGS (1)
  1. PRIVIGEN [Suspect]
     Active Substance: HUMAN IMMUNOGLOBULIN G
     Indication: HYPOGAMMAGLOBULINAEMIA
     Dosage: 35 G, Q3WEEKS
     Route: 042
     Dates: start: 20180302

REACTIONS (1)
  - Scab [Unknown]

NARRATIVE: CASE EVENT DATE: 201809
